FAERS Safety Report 9806092 (Version 3)
Quarter: 2014Q2

REPORT INFORMATION
  Report Type: Spontaneous
  Country: KR (occurrence: None)
  Receive Date: 20140107
  Receipt Date: 20140423
  Transmission Date: 20141212
  Serious: Yes (Hospitalization)
  Sender: FDA-Public Use
  Company Number: 2013KR002342

PATIENT
  Age: 39 Year
  Sex: Female
  Weight: 66 kg

DRUGS (2)
  1. PONATINIB [Suspect]
     Indication: CHRONIC MYELOID LEUKAEMIA
     Route: 048
     Dates: start: 20110620, end: 20130820
  2. FESOTERODINE FUMARATE [Concomitant]

REACTIONS (10)
  - Urinary tract infection [None]
  - Pyrexia [None]
  - Pancytopenia [None]
  - Blood glucose increased [None]
  - Blood lactate dehydrogenase increased [None]
  - Blood magnesium decreased [None]
  - Cardiomegaly [None]
  - Hepatomegaly [None]
  - Protein total decreased [None]
  - Abdominal pain [None]
